FAERS Safety Report 9805770 (Version 4)
Quarter: 2014Q1

REPORT INFORMATION
  Report Type: Spontaneous
  Country: US (occurrence: US)
  Receive Date: 20140109
  Receipt Date: 20140116
  Transmission Date: 20141002
  Serious: Yes (Death)
  Sender: FDA-Public Use
  Company Number: US-PFIZER INC-2014005956

PATIENT
  Age: 59 Year
  Sex: Male

DRUGS (2)
  1. AMIODARONE HCL [Suspect]
     Dosage: UNK
     Route: 048
  2. COLCHICINE [Suspect]
     Dosage: UNK
     Route: 048

REACTIONS (1)
  - Death [Fatal]
